FAERS Safety Report 4395183-6 (Version None)
Quarter: 2004Q3

REPORT INFORMATION
  Report Type: 
  Country: None (occurrence: None)
  Receive Date: 20040706
  Receipt Date: 20040624
  Transmission Date: 20050211
  Serious: Yes (Hospitalization)
  Sender: FDA-Public Use
  Company Number: K200400926

PATIENT
  Sex: 0

DRUGS (6)
  1. ALTACE [Suspect]
     Indication: HYPERTENSION
     Dosage: 10 MG, QD, ORAL
     Route: 048
     Dates: start: 20040126, end: 20040301
  2. TAMOXIFEN CITRATE [Concomitant]
  3. BENDROFLUAZIDE [Concomitant]
  4. DERMOL (PARAFFIN, LIQUID, ISOPROPYL  MYRISTATE, CHLORHEXIDINE HYDROCHL [Concomitant]
  5. METFORMIN HCL [Concomitant]
  6. ATENOLOL [Concomitant]

REACTIONS (1)
  - PROTEIN TOTAL DECREASED [None]
